FAERS Safety Report 8190635-5 (Version None)
Quarter: 2012Q1

REPORT INFORMATION
  Report Type: 
  Country: None (occurrence: None)
  Receive Date: 20120305
  Receipt Date: 20120222
  Transmission Date: 20120608
  Serious: Yes (Congenital Anomaly)
  Sender: FDA-Public Use
  Company Number: 2012020256

PATIENT
  Sex: Female

DRUGS (4)
  1. LORAZEPAM [Suspect]
     Indication: MATERNAL EXPOSURE TIMING UNSPECIFIED
     Dosage: TRANSPLACENTAL
     Route: 064
  2. ZOLPIDEM [Suspect]
     Indication: MATERNAL EXPOSURE TIMING UNSPECIFIED
     Dosage: TRANSPLACENTAL
     Route: 064
  3. MYCOPHENOLATE MOFETIL [Suspect]
     Indication: SYSTEMIC LUPUS ERYTHEMATOSUS
     Dosage: TRANSPLACENTAL
     Route: 064
  4. ESCITALOPRAM [Suspect]
     Indication: MATERNAL EXPOSURE TIMING UNSPECIFIED
     Dosage: TRANSPLACENTAL
     Route: 064

REACTIONS (5)
  - CONGENITAL ANOMALY [None]
  - TRACHEAL ATRESIA [None]
  - MATERNAL DRUGS AFFECTING FOETUS [None]
  - FOETAL MALFORMATION [None]
  - OESOPHAGEAL ATRESIA [None]
